FAERS Safety Report 7952572-8 (Version None)
Quarter: 2011Q4

REPORT INFORMATION
  Report Type: 
  Country: None (occurrence: None)
  Receive Date: 20111201
  Receipt Date: 20111129
  Transmission Date: 20120403
  Serious: Yes (Hospitalization)
  Sender: FDA-Public Use
  Company Number: FR-ROCHE-1017595

PATIENT
  Age: 81 Year
  Sex: Female

DRUGS (15)
  1. VALACYCLOVIR HYDROCHLORIDE [Suspect]
     Indication: PROPHYLAXIS
     Route: 048
     Dates: start: 20111002
  2. EPREX [Suspect]
     Indication: PRODUCT USED FOR UNKNOWN INDICATION
     Dates: start: 20111002
  3. ISOCARD [Concomitant]
  4. ALPRAZOLAM [Concomitant]
  5. CARLYTENE [Concomitant]
  6. MABTHERA [Suspect]
     Indication: NON-HODGKIN'S LYMPHOMA
     Route: 042
     Dates: start: 20111002
  7. CHLORAMINOPHENE [Suspect]
     Dosage: 5 TABLETS IN THE MORNING
     Dates: start: 20111023
  8. VASTAREL [Concomitant]
  9. NUTROF [Concomitant]
  10. TRAMADOL HCL [Concomitant]
  11. MABTHERA [Suspect]
     Route: 042
  12. MABTHERA [Suspect]
     Dosage: 4TH INFUSION.
     Dates: start: 20111025
  13. TIMOPTOL [Concomitant]
  14. CROMABAK [Concomitant]
  15. CHLORAMINOPHENE [Suspect]
     Indication: NON-HODGKIN'S LYMPHOMA
     Route: 048
     Dates: start: 20111002

REACTIONS (1)
  - MYOCLONUS [None]
